FAERS Safety Report 11333885 (Version 6)
Quarter: 2021Q3

REPORT INFORMATION
  Report Type: Spontaneous
  Country: US (occurrence: US)
  Receive Date: 20150803
  Receipt Date: 20210730
  Transmission Date: 20211014
  Serious: No
  Sender: FDA-Public Use
  Company Number: US-PFIZER INC-2015243165

PATIENT
  Age: 63 Year
  Sex: Female

DRUGS (1)
  1. LYRICA [Suspect]
     Active Substance: PREGABALIN
     Dosage: UNK, 3X/DAY (2?3 CAPSULE)
     Route: 048

REACTIONS (5)
  - Poor quality product administered [Unknown]
  - Product storage error [Unknown]
  - Withdrawal syndrome [Unknown]
  - Migraine [Unknown]
  - Weight increased [Unknown]

NARRATIVE: CASE EVENT DATE: 201904
